FAERS Safety Report 7971477-X (Version None)
Quarter: 2011Q4

REPORT INFORMATION
  Report Type: 
  Country: None (occurrence: None)
  Receive Date: 20111209
  Receipt Date: 20111209
  Transmission Date: 20120403
  Serious: Yes (Hospitalization)
  Sender: FDA-Public Use
  Company Number: None

PATIENT
  Sex: Male
  Weight: 72.12 kg

DRUGS (2)
  1. CISPLATIN [Suspect]
     Dosage: 143 MG
     Dates: end: 20111117
  2. TAXOTERE [Suspect]
     Dosage: 143 MG
     Dates: end: 20111117

REACTIONS (5)
  - FISTULA [None]
  - PAIN [None]
  - STREPTOCOCCAL INFECTION [None]
  - CULTURE WOUND POSITIVE [None]
  - SWELLING FACE [None]
